FAERS Safety Report 15617361 (Version 5)
Quarter: 2019Q1

REPORT INFORMATION
  Report Type: Spontaneous
  Country: JP (occurrence: JP)
  Receive Date: 20181114
  Receipt Date: 20190206
  Transmission Date: 20190417
  Serious: Yes (Other)
  Sender: FDA-Public Use
  Company Number: PHJP2018JP018783

PATIENT
  Age: 37 Year
  Sex: Female

DRUGS (7)
  1. NEORAL [Suspect]
     Active Substance: CYCLOSPORINE
     Indication: PSORIATIC ARTHROPATHY
     Dosage: 300 MG, UNK
     Route: 048
  2. NEORAL [Suspect]
     Active Substance: CYCLOSPORINE
     Dosage: 90 MG, UNK
     Route: 048
  3. COSENTYX [Suspect]
     Active Substance: SECUKINUMAB
     Indication: PSORIATIC ARTHROPATHY
     Dosage: 300 MG, QW
     Route: 058
     Dates: start: 20180406, end: 20180504
  4. COSENTYX [Suspect]
     Active Substance: SECUKINUMAB
     Dosage: 300 MG, QMO
     Route: 058
     Dates: start: 20180601
  5. COMCOL [Concomitant]
     Indication: PSORIASIS
     Dosage: 7.5 ML, QD
     Route: 065
  6. NEORAL [Suspect]
     Active Substance: CYCLOSPORINE
     Dosage: UNK
     Route: 048
     Dates: start: 20180406
  7. LOXONIN [Concomitant]
     Active Substance: LOXOPROFEN SODIUM
     Indication: PSORIATIC ARTHROPATHY
     Dosage: 1 DF, TID
     Route: 048

REACTIONS (5)
  - Psoriatic arthropathy [Recovered/Resolved]
  - Arthralgia [Recovering/Resolving]
  - Therapeutic response decreased [Recovering/Resolving]
  - Renal impairment [Unknown]
  - Rash [Recovered/Resolved]

NARRATIVE: CASE EVENT DATE: 20180406
